FAERS Safety Report 24772960 (Version 1)
Quarter: 2024Q4

REPORT INFORMATION
  Report Type: Spontaneous
  Country: JP (occurrence: JP)
  Receive Date: 20241225
  Receipt Date: 20241225
  Transmission Date: 20250115
  Serious: Yes (Hospitalization, Disabling, Other)
  Sender: GLAXOSMITHKLINE
  Company Number: JP-GSK-JP2024JPN149051

PATIENT

DRUGS (21)
  1. DAPRODUSTAT [Suspect]
     Active Substance: DAPRODUSTAT
     Indication: Nephrogenic anaemia
     Dosage: 2 MG, 1D, AFTER BREAKFAST
     Route: 048
     Dates: start: 20240819
  2. DARBEPOETIN ALFA [Suspect]
     Active Substance: DARBEPOETIN ALFA
     Indication: Nephrogenic anaemia
     Dosage: 1 KT
     Route: 058
     Dates: start: 20240813, end: 20240813
  3. ASPIRIN [Concomitant]
     Active Substance: ASPIRIN
     Dosage: 100 MG
     Dates: start: 20240716
  4. VONOPRAZAN FUMARATE [Concomitant]
     Active Substance: VONOPRAZAN FUMARATE
     Dosage: 10 MG
     Dates: start: 20240716
  5. ROSUVASTATIN [Concomitant]
     Active Substance: ROSUVASTATIN
     Dosage: 5 MG, 1D, AFTER BREAKFAST
     Dates: start: 20240716
  6. EZETIMIBE [Concomitant]
     Active Substance: EZETIMIBE
     Dosage: 10 MG, 1D, AFTER BREAKFAST
     Dates: start: 20240716
  7. TOLVAPTAN [Concomitant]
     Active Substance: TOLVAPTAN
     Dosage: STARTED AT 7.5 MG, WITH DOSAGE CHANGE
  8. TOLVAPTAN [Concomitant]
     Active Substance: TOLVAPTAN
     Dosage: 150 MG, 1D, AFTER BREAKFAST
     Dates: start: 20240716
  9. SPIRONOLACTONE [Concomitant]
     Active Substance: SPIRONOLACTONE
     Dosage: 12.5 MG, 1D, AFTER BREAKFAST
     Dates: start: 20240726
  10. ZINC [Concomitant]
     Active Substance: ZINC
     Dosage: 50 MG, BID, AFTER BREAKFAST AND DINNER
     Dates: start: 20240719
  11. FEBUXOSTAT [Concomitant]
     Active Substance: FEBUXOSTAT
     Dosage: 20 MG, 1D, AFTER BREAKFAST
     Dates: start: 20240718
  12. AZOSEMIDE [Concomitant]
     Active Substance: AZOSEMIDE
     Dosage: 60 MG, 1D, AFTER BREAKFAST
     Dates: start: 20240801
  13. PRASUGREL HYDROCHLORIDE [Concomitant]
     Active Substance: PRASUGREL HYDROCHLORIDE
     Dosage: 30 MG, 1D, AFTER BREAKFAST
     Dates: start: 20240805
  14. DAYVIGO [Concomitant]
     Active Substance: LEMBOREXANT
     Dosage: 5 MG
     Dates: start: 20240728
  15. RAMELTEON [Concomitant]
     Active Substance: RAMELTEON
     Dosage: 8 MG, 1D, BEFORE BEDTIME
     Dates: start: 20240728
  16. ENTRESTO [Concomitant]
     Active Substance: SACUBITRIL\VALSARTAN
     Dosage: 50 MG, BID, AFTER BREAKFAST AND DINNER
     Dates: start: 20240719
  17. LOKELMA [Concomitant]
     Active Substance: SODIUM ZIRCONIUM CYCLOSILICATE
     Dosage: 5 G, 1D, AFTER BREAKFAST
     Dates: start: 20240821
  18. CARVEDILOL [Concomitant]
     Active Substance: CARVEDILOL
     Dosage: 2.5 MG, BID, AFTER BREAKFAST AND DINNER
     Dates: start: 20240723
  19. LINAGLIPTIN [Concomitant]
     Active Substance: LINAGLIPTIN
     Dosage: 5 MG, 1D, AFTER BREAKFAST
     Dates: start: 20240826
  20. ELOBIXIBAT [Concomitant]
     Active Substance: ELOBIXIBAT
     Dosage: 10 MG, 1D, BEFORE BREAKFAST
     Dates: start: 20240906
  21. CALONAL [Concomitant]
     Active Substance: ACETAMINOPHEN
     Dosage: 400 MG, AT THE TIME OF PAIN
     Dates: start: 20240906

REACTIONS (7)
  - Cerebral infarction [Recovered/Resolved with Sequelae]
  - Muscular weakness [Recovering/Resolving]
  - Haemorrhoids [Recovering/Resolving]
  - Haemorrhage [Recovering/Resolving]
  - Oliguria [Recovering/Resolving]
  - Product use issue [Unknown]
  - Off label use [Unknown]

NARRATIVE: CASE EVENT DATE: 20240907
